FAERS Safety Report 5849004-2 (Version None)
Quarter: 2008Q3

REPORT INFORMATION
  Report Type: 
  Country: None (occurrence: None)
  Receive Date: 20080819
  Receipt Date: 20080814
  Transmission Date: 20090109
  Serious: Yes (Hospitalization)
  Sender: FDA-Public Use
  Company Number: DE-WYE-G01526008

PATIENT
  Sex: Male
  Weight: 75 kg

DRUGS (1)
  1. TREVILOR RETARD [Suspect]
     Dosage: 30 CAPSULES (OVERDOSE AMOUNT 4500MG)
     Route: 048
     Dates: start: 20080512, end: 20080512

REACTIONS (5)
  - CONDITION AGGRAVATED [None]
  - INTENTIONAL OVERDOSE [None]
  - MULTIPLE SCLEROSIS [None]
  - PERSONALITY CHANGE [None]
  - SUICIDE ATTEMPT [None]
